FAERS Safety Report 12917507 (Version 3)
Quarter: 2017Q1

REPORT INFORMATION
  Report Type: Report from Study
  Country: CA (occurrence: CA)
  Receive Date: 20161107
  Receipt Date: 20170329
  Transmission Date: 20170428
  Serious: Yes (Other)
  Sender: FDA-Public Use
  Company Number: CA-ROCHE-ITM201410IM007232

PATIENT
  Age: 75 Year
  Sex: Male
  Weight: 64 kg

DRUGS (11)
  1. ESBRIET [Suspect]
     Active Substance: PIRFENIDONE
     Route: 048
     Dates: start: 20141018
  2. VITAMIN C [Concomitant]
     Active Substance: ASCORBIC ACID
  3. ESBRIET [Suspect]
     Active Substance: PIRFENIDONE
     Route: 048
     Dates: start: 20141025, end: 20150425
  4. VITAMIN B12 [Concomitant]
     Active Substance: CYANOCOBALAMIN
  5. ESBRIET [Suspect]
     Active Substance: PIRFENIDONE
     Route: 048
     Dates: start: 20150509
  6. ESBRIET [Suspect]
     Active Substance: PIRFENIDONE
     Route: 048
     Dates: start: 20150516
  7. ESBRIET [Suspect]
     Active Substance: PIRFENIDONE
     Route: 048
     Dates: start: 20150530
  8. AVODART [Concomitant]
     Active Substance: DUTASTERIDE
  9. TAMSULOSIN [Concomitant]
     Active Substance: TAMSULOSIN
  10. VITAMIN D3 [Concomitant]
     Active Substance: CHOLECALCIFEROL
  11. ESBRIET [Suspect]
     Active Substance: PIRFENIDONE
     Indication: IDIOPATHIC PULMONARY FIBROSIS
     Dosage: TREATMENT INITIATION PACK
     Route: 048
     Dates: start: 20141011

REACTIONS (13)
  - Headache [Recovering/Resolving]
  - Dizziness [Recovering/Resolving]
  - Pulmonary function test abnormal [Unknown]
  - Fall [Unknown]
  - Cough [Unknown]
  - Dyspnoea exertional [Unknown]
  - Fatigue [Unknown]
  - Pulmonary function test decreased [Unknown]
  - Weight decreased [Unknown]
  - Rib fracture [Unknown]
  - Nausea [Recovering/Resolving]
  - Skin disorder [Unknown]
  - Asthenia [Not Recovered/Not Resolved]

NARRATIVE: CASE EVENT DATE: 20170113
